FAERS Safety Report 13070175 (Version 1)
Quarter: 2016Q4

REPORT INFORMATION
  Report Type: Report from Study
  Country: US (occurrence: US)
  Receive Date: 20161228
  Receipt Date: 20161228
  Transmission Date: 20170207
  Serious: Yes (Hospitalization)
  Sender: FDA-Public Use
  Company Number: US-ASTRAZENECA-2016SF33991

PATIENT
  Age: 69 Year

DRUGS (4)
  1. ASA CODE NOT BROKEN [Suspect]
     Active Substance: ASPIRIN
     Indication: PERCUTANEOUS CORONARY INTERVENTION
     Route: 065
     Dates: start: 20160421, end: 20161012
  2. TICAGRELOR [Suspect]
     Active Substance: TICAGRELOR
     Indication: CARDIOVASCULAR DISORDER
     Route: 048
     Dates: start: 20160210, end: 20161012
  3. TICAGRELOR [Suspect]
     Active Substance: TICAGRELOR
     Indication: PERCUTANEOUS CORONARY INTERVENTION
     Route: 048
     Dates: start: 20160210, end: 20161012
  4. ASA CODE NOT BROKEN [Suspect]
     Active Substance: ASPIRIN
     Indication: CARDIOVASCULAR DISORDER
     Route: 065
     Dates: start: 20160421, end: 20161012

REACTIONS (1)
  - Coronary revascularisation [Recovered/Resolved]

NARRATIVE: CASE EVENT DATE: 20161011
